FAERS Safety Report 22151337 (Version 1)
Quarter: 2023Q1

REPORT INFORMATION
  Report Type: Spontaneous
  Country: US (occurrence: None)
  Receive Date: 20230328
  Receipt Date: 20230328
  Transmission Date: 20230417
  Serious: Yes (unspecified)
  Sender: FDA-Public Use
  Company Number: None

PATIENT
  Age: 48 Year
  Sex: Female

DRUGS (1)
  1. QULIPTA [Suspect]
     Active Substance: ATOGEPANT
     Indication: Migraine without aura
     Dosage: FREQUENCY : DAILY;?
     Dates: start: 20230220, end: 20230315

REACTIONS (2)
  - Pericardial effusion [None]
  - Tachycardia [None]

NARRATIVE: CASE EVENT DATE: 20230306
